FAERS Safety Report 18286042 (Version 1)
Quarter: 2020Q3

REPORT INFORMATION
  Report Type: Spontaneous
  Country: US (occurrence: US)
  Receive Date: 20200919
  Receipt Date: 20200919
  Transmission Date: 20201103
  Serious: Yes (Other)
  Sender: FDA-Public Use
  Company Number: US-INCYTE CORPORATION-2020IN008800

PATIENT

DRUGS (1)
  1. JAKAVI [Suspect]
     Active Substance: RUXOLITINIB
     Indication: HAEMOPHAGOCYTIC LYMPHOHISTIOCYTOSIS
     Dosage: 10 MG, BID
     Route: 065

REACTIONS (3)
  - Haemophagocytic lymphohistiocytosis [Not Recovered/Not Resolved]
  - Product use in unapproved indication [Unknown]
  - Diffuse large B-cell lymphoma refractory [Unknown]
